FAERS Safety Report 6195290-1 (Version None)
Quarter: 2009Q2

REPORT INFORMATION
  Report Type: 
  Country: None (occurrence: None)
  Receive Date: 20090515
  Receipt Date: 20090506
  Transmission Date: 20091009
  Serious: Yes (Other)
  Sender: FDA-Public Use
  Company Number: 2009US001506

PATIENT
  Age: 18 Year
  Sex: Female

DRUGS (2)
  1. AMBISOME [Suspect]
     Indication: ASPERGILLOSIS
     Dosage: 10 MG/KG, UID/QD, 500 MG, UID/QD, IV NOS, 250 MG, UID/QD
  2. VORICONAZOLE (VORICONAZOLE) [Concomitant]

REACTIONS (1)
  - NEPHROGENIC DIABETES INSIPIDUS [None]
